FAERS Safety Report 4639600-2 (Version None)
Quarter: 2005Q1

REPORT INFORMATION
  Report Type: 
  Country: None (occurrence: None)
  Receive Date: 20050328
  Receipt Date: 20050209
  Transmission Date: 20050727
  Serious: No
  Sender: FDA-Public Use
  Company Number: USA050290388

PATIENT
  Age: 13 Year
  Sex: Male
  Weight: 55 kg

DRUGS (2)
  1. STRATTERA [Suspect]
     Indication: ATTENTION DEFICIT/HYPERACTIVITY DISORDER
     Dosage: 80 MG IN THE MORNING
     Dates: start: 20041001
  2. ALBUTEROL [Concomitant]

REACTIONS (2)
  - PRESCRIBED OVERDOSE [None]
  - RASH [None]
